FAERS Safety Report 9681209 (Version 3)
Quarter: 2013Q4

REPORT INFORMATION
  Report Type: Spontaneous
  Country: US (occurrence: US)
  Receive Date: 20131111
  Receipt Date: 20131212
  Transmission Date: 20140711
  Serious: Yes (Other)
  Sender: FDA-Public Use
  Company Number: US-TEVA-380005USA

PATIENT
  Age: 30 Year
  Sex: Female
  Weight: 57.66 kg

DRUGS (2)
  1. PARAGARD 380A [Suspect]
     Indication: CONTRACEPTION
     Route: 015
     Dates: start: 20120709, end: 20121231
  2. SYNTHROID [Concomitant]
     Indication: HYPOTHYROIDISM
     Dosage: 100 MICROGRAM DAILY;
     Route: 048

REACTIONS (4)
  - Device dislocation [Recovered/Resolved]
  - Pregnancy with contraceptive device [Unknown]
  - Drug ineffective [Unknown]
  - Amenorrhoea [Not Recovered/Not Resolved]
